FAERS Safety Report 6475172-8 (Version None)
Quarter: 2009Q4

REPORT INFORMATION
  Report Type: 
  Country: None (occurrence: None)
  Receive Date: 20091204
  Receipt Date: 20090706
  Transmission Date: 20100525
  Serious: Yes (Hospitalization, Disabling, Other)
  Sender: FDA-Public Use
  Company Number: US-ELI_LILLY_AND_COMPANY-US200903005927

PATIENT
  Sex: Female

DRUGS (8)
  1. FORTEO [Suspect]
     Indication: OSTEOPOROSIS
     Dosage: UNK, UNK
     Dates: start: 20080101, end: 20081026
  2. FORTEO [Suspect]
     Dosage: 20 UG, DAILY (1/D)
     Dates: start: 20090320
  3. ACCUPRIL [Concomitant]
  4. CADUET [Concomitant]
  5. AVANDAMET [Concomitant]
  6. INSULIN [Concomitant]
  7. GLYBURIDE [Concomitant]
  8. DIAZEPAM [Concomitant]

REACTIONS (9)
  - ABASIA [None]
  - ARTHRITIS [None]
  - BACK PAIN [None]
  - CRYING [None]
  - DEVICE BREAKAGE [None]
  - FALL [None]
  - FOOT FRACTURE [None]
  - LIMB DISCOMFORT [None]
  - PAIN IN EXTREMITY [None]
